FAERS Safety Report 6025762-1 (Version None)
Quarter: 2008Q4

REPORT INFORMATION
  Report Type: 
  Country: None (occurrence: None)
  Receive Date: 20081224
  Receipt Date: 20081224
  Transmission Date: 20090506
  Serious: No
  Sender: FDA-Public Use
  Company Number: FPI-08-TEV-0267

PATIENT
  Sex: Female
  Weight: 45 kg

DRUGS (2)
  1. TEV-TROPIN [Suspect]
     Indication: GROWTH HORMONE DEFICIENCY
     Dosage: 3.5MG ALTERNATING 4.5MG
  2. MOTRIN [Concomitant]

REACTIONS (4)
  - ARTHRALGIA [None]
  - JOINT SWELLING [None]
  - OEDEMA PERIPHERAL [None]
  - PAIN [None]
